FAERS Safety Report 24590861 (Version 3)
Quarter: 2025Q1

REPORT INFORMATION
  Report Type: Spontaneous
  Country: CZ (occurrence: CZ)
  Receive Date: 20241107
  Receipt Date: 20250204
  Transmission Date: 20250409
  Serious: No
  Sender: ORGANON
  Company Number: CZ-AUROBINDO-AUR-APL-2024-051933

PATIENT
  Age: 63 Year
  Sex: Male

DRUGS (11)
  1. LOSARTAN POTASSIUM [Suspect]
     Active Substance: LOSARTAN POTASSIUM
     Indication: Hypertension
     Dosage: 50 MILLIGRAM, ONCE A DAY
     Route: 065
     Dates: start: 202401
  2. ALLOPURINOL [Suspect]
     Active Substance: ALLOPURINOL
     Indication: Nephropathy
     Dosage: UNK, ONCE A DAY (1-0-0)
     Route: 065
     Dates: start: 202401
  3. DOXAZOSIN [Suspect]
     Active Substance: DOXAZOSIN MESYLATE
     Indication: Hypertension
     Dosage: 4 MILLIGRAM, ONCE A DAY (1-0-0)
     Route: 065
     Dates: start: 202401
  4. DOXAZOSIN [Suspect]
     Active Substance: DOXAZOSIN MESYLATE
     Dosage: 4 MILLIGRAM, Q12H (1-0-1)
     Dates: start: 202401
  5. DOXAZOSIN [Suspect]
     Active Substance: DOXAZOSIN MESYLATE
     Dosage: 4 MILLIGRAM, TWO TIMES A DAY (1-0-1 )
     Route: 065
     Dates: start: 202401
  6. AMLODIPINE [Suspect]
     Active Substance: AMLODIPINE BESYLATE
     Indication: Hypertension
     Dosage: 5 MILLIGRAM, ONCE A DAY
     Route: 065
     Dates: start: 202401
  7. RILMENIDINE [Suspect]
     Active Substance: RILMENIDINE
     Indication: Hypertension
     Dosage: 1 GRAM, ONCE A DAY (1-0-0)
     Route: 065
     Dates: start: 202401
  8. ATENOLOL [Suspect]
     Active Substance: ATENOLOL
     Indication: Hypertension
     Dosage: 50 MILLIGRAM, ONCE A DAY (1-0-0)
     Route: 065
     Dates: start: 202401
  9. POTASSIUM CHLORIDE [Suspect]
     Active Substance: POTASSIUM CHLORIDE
     Indication: Hypertension
     Dosage: UNK, ONCE A DAY (1-0-0)
     Route: 065
     Dates: start: 202401
  10. METFORMIN [Concomitant]
     Active Substance: METFORMIN HYDROCHLORIDE
     Indication: Type 2 diabetes mellitus
     Dosage: 1000 MILLIGRAM, ONCE A DAY (1-0-0)
     Route: 065
     Dates: start: 202401
  11. GLIQUIDONE [Concomitant]
     Active Substance: GLIQUIDONE
     Indication: Type 2 diabetes mellitus
     Dosage: 30 MILLIGRAM, TWO TIMES A DAY (1-0-1)
     Route: 065
     Dates: start: 202401

REACTIONS (8)
  - Drug ineffective [Unknown]
  - Sleep apnoea syndrome [Unknown]
  - Oxygen saturation [Unknown]
  - Glycosylated haemoglobin increased [Unknown]
  - Therapy partial responder [Unknown]
  - Peripheral swelling [Recovered/Resolved]
  - Oedema peripheral [Recovered/Resolved]
  - Therapeutic product effect incomplete [Recovered/Resolved]
